FAERS Safety Report 6585973-3 (Version None)
Quarter: 2010Q1

REPORT INFORMATION
  Report Type: 
  Country: None (occurrence: None)
  Receive Date: 20100217
  Receipt Date: 20100209
  Transmission Date: 20100710
  Serious: Yes (Hospitalization)
  Sender: FDA-Public Use
  Company Number: US-SANOFI-AVENTIS-2010SA007647

PATIENT
  Age: 69 Year
  Sex: Male
  Weight: 64.5 kg

DRUGS (3)
  1. DOCETAXEL [Suspect]
     Indication: PROSTATE CANCER
     Route: 041
     Dates: start: 20100202, end: 20100202
  2. ELIGARD [Suspect]
     Indication: PROSTATE CANCER
     Dates: start: 20100202, end: 20100202
  3. CASODEX [Suspect]
     Indication: PROSTATE CANCER
     Dates: start: 20100202, end: 20100206

REACTIONS (1)
  - LOSS OF CONSCIOUSNESS [None]
